FAERS Safety Report 19131873 (Version 4)
Quarter: 2021Q3

REPORT INFORMATION
  Report Type: Spontaneous
  Country: US (occurrence: US)
  Receive Date: 20210414
  Receipt Date: 20210705
  Transmission Date: 20211014
  Serious: Yes (Hospitalization, Other)
  Sender: FDA-Public Use
  Company Number: US-ESPERIONTHERAPEUTICS-2021USA00722

PATIENT
  Age: 63 Year
  Sex: Female

DRUGS (7)
  1. METOPROLOL SUCCINATE. [Concomitant]
     Active Substance: METOPROLOL SUCCINATE
     Dosage: 50 MILLIGRAM, QD
     Route: 065
  2. WELLBUTRIN [Concomitant]
     Active Substance: BUPROPION HYDROCHLORIDE
     Dosage: 300 MILLIGRAM, QD
     Route: 065
  3. MODAFINIL. [Concomitant]
     Active Substance: MODAFINIL
     Dosage: 200 MILLIGRAM, QD
     Route: 065
  4. HCTZ [Concomitant]
     Active Substance: HYDROCHLOROTHIAZIDE
     Dosage: 25 MILLIGRAM, QD
     Route: 065
  5. NEXLETOL [Suspect]
     Active Substance: BEMPEDOIC ACID
     Indication: HYPERLIPIDAEMIA
     Dosage: 180 MILLIGRAM
     Route: 065
     Dates: start: 20210330, end: 20210405
  6. ALTIME?CF [Concomitant]
     Dosage: 10 MILLIGRAM, QD
     Route: 065
  7. AMLODIPINE [Concomitant]
     Active Substance: AMLODIPINE BESYLATE
     Dosage: 5 MILLIGRAM, QD
     Route: 065

REACTIONS (4)
  - Amylase increased [Recovered/Resolved]
  - Lipase increased [Recovered/Resolved]
  - Abdominal pain [Recovered/Resolved]
  - Pancreatitis [Recovered/Resolved]

NARRATIVE: CASE EVENT DATE: 20210405
